FAERS Safety Report 17909598 (Version 4)
Quarter: 2020Q3

REPORT INFORMATION
  Report Type: Spontaneous
  Country: FR (occurrence: FR)
  Receive Date: 20200617
  Receipt Date: 20200720
  Transmission Date: 20201103
  Serious: Yes (Hospitalization, Other)
  Sender: FDA-Public Use
  Company Number: NVSC2020FR168265

PATIENT
  Age: 56 Year
  Sex: Male

DRUGS (20)
  1. CASPOFUNGIN [Suspect]
     Active Substance: CASPOFUNGIN
     Indication: ASPERGILLUS INFECTION
     Dosage: 0.02 MICROGRAM PER MILLIGRAM
     Route: 065
  2. AMPHOTERICIN B DEOXYCHOLATE [Suspect]
     Active Substance: AMPHOTERICIN B
     Indication: ENDOPHTHALMITIS
  3. VORICONAZOLE. [Suspect]
     Active Substance: VORICONAZOLE
     Dosage: 200 MG, QD
     Route: 048
  4. CASPOFUNGIN [Suspect]
     Active Substance: CASPOFUNGIN
     Indication: ANTIFUNGAL TREATMENT
  5. AZITHROMYCIN ANHYDROUS. [Concomitant]
     Active Substance: AZITHROMYCIN ANHYDROUS
     Indication: EVIDENCE BASED TREATMENT
     Dosage: UNK FOR 1 WEEK
     Route: 065
  6. VORICONAZOLE. [Suspect]
     Active Substance: VORICONAZOLE
     Dosage: 300 MG BID ON DAY 4
     Route: 065
  7. POSACONAZOLE [Concomitant]
     Active Substance: POSACONAZOLE
     Indication: ANTIFUNGAL TREATMENT
     Dosage: 0.19 MICROGRAM PER MILLIGRAM
     Route: 065
  8. CICLOSPORIN [Concomitant]
     Active Substance: CYCLOSPORINE
     Indication: IMMUNOSUPPRESSANT DRUG THERAPY
     Dosage: 125MG DAILY IN TWO DOSES
     Route: 065
  9. PREDNISONE. [Concomitant]
     Active Substance: PREDNISONE
     Dosage: 30 MG, QD
     Route: 065
  10. VORICONAZOLE. [Suspect]
     Active Substance: VORICONAZOLE
     Indication: IMMUNOSUPPRESSION
     Dosage: 300 MG, BID
     Route: 065
  11. VORICONAZOLE. [Suspect]
     Active Substance: VORICONAZOLE
     Dosage: 400 MG, QD
     Route: 048
  12. AMPHOTERICINE B, LIPOSOME [Suspect]
     Active Substance: AMPHOTERICIN B
     Indication: ASPERGILLUS INFECTION
     Dosage: 3 MG, QD
     Route: 042
  13. PREDNISONE. [Concomitant]
     Active Substance: PREDNISONE
     Indication: IMMUNOSUPPRESSANT DRUG THERAPY
     Dosage: 60 MILLIGRAM DAILY;
     Route: 065
  14. MYCOPHENOLATE MOFETIL. [Concomitant]
     Active Substance: MYCOPHENOLATE MOFETIL
     Indication: IMMUNOSUPPRESSANT DRUG THERAPY
     Dosage: 1500 MILLIGRAM DAILY;
     Route: 065
  15. MYCOPHENOLATE MOFETIL. [Concomitant]
     Active Substance: MYCOPHENOLATE MOFETIL
     Dosage: 750 MG, QD
     Route: 065
  16. VORICONAZOLE. [Suspect]
     Active Substance: VORICONAZOLE
     Indication: ASPERGILLUS INFECTION
     Dosage: 200 MG, BID
     Route: 065
  17. VORICONAZOLE. [Suspect]
     Active Substance: VORICONAZOLE
     Dosage: 300 MG, QD
     Route: 048
  18. AMPHOTERICIN B DEOXYCHOLATE [Suspect]
     Active Substance: AMPHOTERICIN B
     Indication: MYCOTIC ENDOPHTHALMITIS
     Dosage: 5 UG/0.1ML
     Route: 047
  19. AMPHOTERICIN B DEOXYCHOLATE [Suspect]
     Active Substance: AMPHOTERICIN B
     Indication: ASPERGILLUS INFECTION
     Dosage: 5 MG/0.1 ML, GIVEN ON DAYS 14, 18, 21, 24 AND 36
     Route: 031
  20. VORICONAZOLE. [Suspect]
     Active Substance: VORICONAZOLE
     Indication: ANTIFUNGAL TREATMENT
     Dosage: 600 MG, QD
     Route: 048

REACTIONS (10)
  - Systemic mycosis [Recovered/Resolved]
  - Aspergillus infection [Recovered/Resolved]
  - Therapeutic response decreased [Recovered/Resolved]
  - Bronchopulmonary aspergillosis [Recovered/Resolved]
  - Vitritis [Unknown]
  - Transaminases increased [Recovered/Resolved]
  - Condition aggravated [Recovered/Resolved]
  - Endophthalmitis [Recovered/Resolved]
  - Visual acuity reduced [Unknown]
  - Overdose [Recovered/Resolved]
